FAERS Safety Report 15431752 (Version 1)
Quarter: 2018Q3

REPORT INFORMATION
  Report Type: Spontaneous
  Country: PL (occurrence: PL)
  Receive Date: 20180926
  Receipt Date: 20180926
  Transmission Date: 20181010
  Serious: Yes (Death)
  Sender: FDA-Public Use
  Company Number: PL-ASTRAZENECA-2018SF20468

PATIENT
  Age: 59 Year
  Sex: Male
  Weight: 127 kg

DRUGS (14)
  1. BYDUREON [Suspect]
     Active Substance: EXENATIDE
     Indication: TYPE 2 DIABETES MELLITUS
     Route: 058
     Dates: start: 20180628, end: 20180705
  2. ACARD [Concomitant]
     Active Substance: ASPIRIN
     Route: 048
  3. KALIPOZ PROLONGATUM [Concomitant]
     Active Substance: POTASSIUM CHLORIDE
     Route: 048
  4. MAGNEZIN [Concomitant]
     Active Substance: MAGNESIUM CARBONATE
     Route: 048
  5. BETALOC ZOK [Concomitant]
     Active Substance: METOPROLOL SUCCINATE
     Route: 048
  6. MICARDIS [Concomitant]
     Active Substance: TELMISARTAN
     Route: 048
  7. FUROSEMID [Concomitant]
     Active Substance: FUROSEMIDE
     Route: 048
  8. POLFENON [Concomitant]
     Active Substance: PROPAFENONE HYDROCHLORIDE
     Route: 048
  9. METFORMIN [Concomitant]
     Active Substance: METFORMIN HYDROCHLORIDE
  10. GROFIBRAT [Concomitant]
     Route: 048
  11. CANAGLIFLOZIN [Concomitant]
     Active Substance: CANAGLIFLOZIN
  12. INVOKANA [Concomitant]
     Active Substance: CANAGLIFLOZIN
     Route: 048
  13. DIUVER [Concomitant]
     Active Substance: TORSEMIDE
     Route: 048
  14. LACIPIL [Concomitant]
     Active Substance: LACIDIPINE
     Route: 048

REACTIONS (2)
  - Pancreatitis acute [Fatal]
  - Abdominal pain [Fatal]

NARRATIVE: CASE EVENT DATE: 20180705
